FAERS Safety Report 18065576 (Version 1)
Quarter: 2020Q3

REPORT INFORMATION
  Report Type: Spontaneous
  Country: JP (occurrence: JP)
  Receive Date: 20200724
  Receipt Date: 20200724
  Transmission Date: 20201103
  Serious: Yes (Other)
  Sender: FDA-Public Use
  Company Number: JP-STRIDES ARCOLAB LIMITED-2020SP008336

PATIENT
  Age: 26 Year
  Sex: Female

DRUGS (4)
  1. POTASSIUM CHLORIDE. [Suspect]
     Active Substance: POTASSIUM CHLORIDE
     Dosage: 30 TABLETS OF SLOW RELEASE POTASSIUM CHLORIDE (EACH TABLET CONTAINING 8 MMOL OF POTASSIUM), TOTAL
     Route: 048
  2. SODIUM CHLORIDE. [Concomitant]
     Active Substance: SODIUM CHLORIDE
     Indication: DIARRHOEA
     Dosage: UNK
     Route: 065
  3. POTASSIUM CHLORIDE. [Suspect]
     Active Substance: POTASSIUM CHLORIDE
     Indication: DIARRHOEA
     Dosage: UNK
     Route: 065
  4. POTASSIUM CHLORIDE. [Suspect]
     Active Substance: POTASSIUM CHLORIDE
     Dosage: UNK, CONTINUED ON SLOW RELEASE POTASSIUM CHLORIDE TABLET
     Route: 065

REACTIONS (9)
  - Hyperkalaemia [Recovered/Resolved]
  - Electrocardiogram P wave abnormal [Unknown]
  - Toxicity to various agents [Unknown]
  - Agitation [Unknown]
  - Epigastric discomfort [Unknown]
  - Nausea [Unknown]
  - Overdose [Unknown]
  - Suicide attempt [Unknown]
  - Electrocardiogram T wave abnormal [Unknown]
